FAERS Safety Report 4721670-4 (Version None)
Quarter: 2005Q3

REPORT INFORMATION
  Report Type: 
  Country: None (occurrence: None)
  Receive Date: 20050721
  Receipt Date: 20050215
  Transmission Date: 20060218
  Serious: No
  Sender: FDA-Public Use
  Company Number: US-BRISTOL-MYERS SQUIBB COMPANY-12862710

PATIENT
  Age: 85 Year
  Sex: Female
  Weight: 53 kg

DRUGS (2)
  1. COUMADIN [Suspect]
     Indication: THROMBOSIS
     Dosage: VARIED DOSAGE - RECENT DOSAGE 5 MG DAILY FOR 5 DAYS AND 5 MG 1/2 TABLET FOR 2 DAYS.
     Dates: start: 20031201, end: 20050210
  2. LISINOPRIL [Concomitant]

REACTIONS (1)
  - PRURITUS ANI [None]
